FAERS Safety Report 5601073-0 (Version None)
Quarter: 2008Q1

REPORT INFORMATION
  Report Type: 
  Country: None (occurrence: None)
  Receive Date: 20080118
  Receipt Date: 20080104
  Transmission Date: 20080703
  Serious: Yes (Other)
  Sender: FDA-Public Use
  Company Number: 2008BI000723

PATIENT

DRUGS (4)
  1. ZEVALIN [Suspect]
     Indication: B-CELL LYMPHOMA
     Dosage: 45 MBQ/KG; IV
     Route: 042
  2. ZEVALIN [Suspect]
     Indication: NON-HODGKIN'S LYMPHOMA
     Dosage: 45 MBQ/KG; IV
     Route: 042
  3. RITUXIMAB [Concomitant]
  4. ANTIBIOTIC PROPHYLAXIS [Concomitant]

REACTIONS (2)
  - HEPATIC FAILURE [None]
  - NEUTROPENIA [None]
